FAERS Safety Report 5256776-7 (Version None)
Quarter: 2007Q1

REPORT INFORMATION
  Report Type: 
  Country: None (occurrence: None)
  Receive Date: 20070306
  Receipt Date: 20070228
  Transmission Date: 20070707
  Serious: Yes (Other)
  Sender: FDA-Public Use
  Company Number: US-PFIZER INC-2007016317

PATIENT
  Age: 63 Year
  Sex: Male

DRUGS (1)
  1. CHANTIX [Suspect]
     Indication: EX-SMOKER
     Route: 048

REACTIONS (2)
  - AGEUSIA [None]
  - WEIGHT DECREASED [None]
